FAERS Safety Report 5593526-9 (Version None)
Quarter: 2008Q1

REPORT INFORMATION
  Report Type: 
  Country: None (occurrence: None)
  Receive Date: 20080116
  Receipt Date: 20080104
  Transmission Date: 20080703
  Serious: Yes (Other)
  Sender: FDA-Public Use
  Company Number: BR-ROCHE-540218

PATIENT
  Age: 26 Year
  Sex: Female

DRUGS (2)
  1. ROACUTAN [Suspect]
     Indication: ACNE
     Route: 048
     Dates: start: 20070101, end: 20071001
  2. LEVONORGESTREL [Concomitant]
     Indication: CONTRACEPTION
     Dosage: DRUG NAME REPORTED: LEVORDIOL.

REACTIONS (2)
  - NO ADVERSE EVENT [None]
  - PREGNANCY [None]
